FAERS Safety Report 10190614 (Version 3)
Quarter: 2016Q2

REPORT INFORMATION
  Report Type: Spontaneous
  Country: US (occurrence: US)
  Receive Date: 20140523
  Receipt Date: 20160525
  Transmission Date: 20160815
  Serious: Yes (Other)
  Sender: FDA-Public Use
  Company Number: US-AMGEN-USASP2014037371

PATIENT
  Sex: Male

DRUGS (4)
  1. VECTIBIX [Suspect]
     Active Substance: PANITUMUMAB
     Indication: COLORECTAL CANCER METASTATIC
     Dosage: UNK
     Route: 065
  2. SULFAMETHOXAZOLE [Interacting]
     Active Substance: SULFAMETHOXAZOLE
     Indication: SKIN REACTION
     Dosage: 800 MG, DAILY
     Route: 065
  3. IRINOTECAN [Suspect]
     Active Substance: IRINOTECAN
     Indication: COLORECTAL CANCER METASTATIC
     Dosage: UNK
     Route: 065
  4. 5 FLUOROURACIL                     /00098801/ [Concomitant]
     Active Substance: FLUOROURACIL
     Indication: COLORECTAL CANCER METASTATIC
     Dosage: UNK

REACTIONS (19)
  - Abdominal discomfort [Unknown]
  - Acne [Unknown]
  - Scar [Unknown]
  - Malaise [Unknown]
  - Drug interaction [Unknown]
  - Skin reaction [Unknown]
  - Drug dose omission [Unknown]
  - Skin exfoliation [Unknown]
  - Rash pustular [Unknown]
  - Dermatitis acneiform [Unknown]
  - Carcinoembryonic antigen increased [Unknown]
  - Face oedema [Unknown]
  - Skin discolouration [Unknown]
  - Hepatic neoplasm [Unknown]
  - Ephelides [Unknown]
  - Rhinalgia [Unknown]
  - Pruritus [Unknown]
  - Bowel movement irregularity [Unknown]
  - Drug hypersensitivity [Unknown]

NARRATIVE: CASE EVENT DATE: 2015
